FAERS Safety Report 20012699 (Version 1)
Quarter: 2021Q4

REPORT INFORMATION
  Report Type: Spontaneous
  Country: US (occurrence: US)
  Receive Date: 20211029
  Receipt Date: 20211029
  Transmission Date: 20220303
  Serious: Yes (Other)
  Sender: FDA-Public Use
  Company Number: US-PFIZER INC-202101440874

PATIENT
  Age: 37 Year
  Sex: Male

DRUGS (1)
  1. SIROLIMUS [Suspect]
     Active Substance: SIROLIMUS
     Dosage: UNK

REACTIONS (4)
  - Mouth haemorrhage [Unknown]
  - Stomatitis [Unknown]
  - Venolymphatic malformation [Unknown]
  - Condition aggravated [Unknown]
